FAERS Safety Report 18519722 (Version 2)
Quarter: 2020Q4

REPORT INFORMATION
  Report Type: Report from Study
  Country: US (occurrence: US)
  Receive Date: 20201118
  Receipt Date: 20201218
  Transmission Date: 20210114
  Serious: Yes (Death, Hospitalization)
  Sender: FDA-Public Use
  Company Number: US-SEATTLE GENETICS-2020SGN04627

PATIENT
  Sex: Female

DRUGS (2)
  1. CAPECITABINE. [Concomitant]
     Active Substance: CAPECITABINE
  2. TUCATINIB [Suspect]
     Active Substance: TUCATINIB
     Indication: BREAST CANCER FEMALE
     Dosage: UNK, 6AM AND 6PM WITH FOOD
     Route: 065

REACTIONS (5)
  - Swelling [Unknown]
  - Asthenia [Unknown]
  - Blood potassium decreased [Unknown]
  - Death [Fatal]
  - Walking aid user [Unknown]
